FAERS Safety Report 5253956-1 (Version None)
Quarter: 2007Q1

REPORT INFORMATION
  Report Type: 
  Country: None (occurrence: None)
  Receive Date: 20070228
  Receipt Date: 20070228
  Transmission Date: 20070707
  Serious: No
  Sender: FDA-Public Use
  Company Number: None

PATIENT
  Age: 41 Year
  Sex: Male
  Weight: 72.5755 kg

DRUGS (1)
  1. OPTIRAY 350 [Suspect]
     Dosage: 100CC 20 CC/SEC LEFT AC

REACTIONS (2)
  - SNEEZING [None]
  - URTICARIA [None]
